FAERS Safety Report 10051032 (Version 5)
Quarter: 2014Q2

REPORT INFORMATION
  Report Type: Spontaneous
  Country: JP (occurrence: JP)
  Receive Date: 20140401
  Receipt Date: 20140623
  Transmission Date: 20141212
  Serious: Yes (Death, Hospitalization, Other)
  Sender: FDA-Public Use
  Company Number: JP-BRISTOL-MYERS SQUIBB COMPANY-20573457

PATIENT
  Age: 82 Year
  Sex: Male
  Weight: 45 kg

DRUGS (3)
  1. ELIQUIS [Suspect]
     Dosage: 20FEB14-09MAR14,20MAR14
     Route: 048
     Dates: start: 20140220, end: 20140320
  2. WARFARIN [Concomitant]
     Route: 048
     Dates: start: 20140218, end: 20140220
  3. HEPARIN SODIUM [Concomitant]
     Route: 042
     Dates: start: 20140216, end: 20140221

REACTIONS (4)
  - Cardiac failure [Fatal]
  - Renal impairment [Fatal]
  - Pneumonia aspiration [Unknown]
  - Metabolic acidosis [Unknown]
